FAERS Safety Report 4679703-X (Version None)
Quarter: 2005Q2

REPORT INFORMATION
  Report Type: 
  Country: None (occurrence: None)
  Receive Date: 20050531
  Receipt Date: 20050516
  Transmission Date: 20051028
  Serious: Yes (Death, Hospitalization)
  Sender: FDA-Public Use
  Company Number: 2005075987

PATIENT
  Age: 94 Year
  Sex: Female
  Weight: 38.1022 kg

DRUGS (2)
  1. BEXTRA [Suspect]
     Indication: PAIN
     Dosage: ORAL
     Route: 048
     Dates: start: 20041001
  2. ALL OTHER THERAPEUTIC PRODUCTS [Concomitant]

REACTIONS (5)
  - ABNORMAL BEHAVIOUR [None]
  - FALL [None]
  - HIP FRACTURE [None]
  - MANIA [None]
  - THROMBOSIS [None]
